FAERS Safety Report 5041691-4 (Version None)
Quarter: 2006Q2

REPORT INFORMATION
  Report Type: 
  Country: None (occurrence: None)
  Receive Date: 20060630
  Receipt Date: 20060619
  Transmission Date: 20061013
  Serious: Yes (Other)
  Sender: FDA-Public Use
  Company Number: 2006077582

PATIENT
  Age: 84 Year
  Sex: Female

DRUGS (3)
  1. SUTENT [Suspect]
     Indication: RENAL CELL CARCINOMA STAGE UNSPECIFIED
     Dosage: 25 MG (25 MG, DAILY), ORAL
     Route: 048
     Dates: start: 20060317
  2. NUTRITIONAL SUPPLEMENT           (GENERAL NUTRIENTS) [Concomitant]
  3. ANTIHYPERTENSIVES         (ANTIHYPERTENSIVES) [Concomitant]

REACTIONS (6)
  - ERYTHEMA [None]
  - GENITAL PRURITUS FEMALE [None]
  - GLOSSODYNIA [None]
  - STOMATITIS [None]
  - VAGINAL BURNING SENSATION [None]
  - WEIGHT DECREASED [None]
